FAERS Safety Report 25056255 (Version 2)
Quarter: 2025Q1

REPORT INFORMATION
  Report Type: Spontaneous
  Country: MX (occurrence: MX)
  Receive Date: 20250310
  Receipt Date: 20250312
  Transmission Date: 20250409
  Serious: Yes (Hospitalization, Other)
  Sender: NOVO NORDISK
  Company Number: MX-NOVOPROD-1381564

PATIENT
  Age: 52 Year
  Sex: Male
  Weight: 92 kg

DRUGS (2)
  1. NOVOEIGHT [Suspect]
     Active Substance: ANTIHEMOPHILIC FACTOR, HUMAN RECOMBINANT
     Indication: Factor VIII deficiency
     Route: 042
  2. NOVOEIGHT [Suspect]
     Active Substance: ANTIHEMOPHILIC FACTOR, HUMAN RECOMBINANT
     Route: 042

REACTIONS (3)
  - Knee arthroplasty [Recovered/Resolved with Sequelae]
  - Pain [Unknown]
  - Procedural complication [Unknown]

NARRATIVE: CASE EVENT DATE: 20250129
